FAERS Safety Report 4640462-8 (Version None)
Quarter: 2005Q2

REPORT INFORMATION
  Report Type: 
  Country: None (occurrence: None)
  Receive Date: 20050419
  Receipt Date: 20050406
  Transmission Date: 20051028
  Serious: Yes (Other)
  Sender: FDA-Public Use
  Company Number: 2004230291US

PATIENT
  Sex: Female
  Weight: 48.0813 kg

DRUGS (10)
  1. PROVERA [Suspect]
     Indication: HORMONE REPLACEMENT THERAPY
     Dates: start: 19820101, end: 20010701
  2. CONJUGATED ESTROGENS [Suspect]
     Indication: HORMONE REPLACEMENT THERAPY
     Dates: start: 19820101, end: 20010701
  3. HYDROCHLOROTHIAZIDE [Concomitant]
  4. LISINOPRIL [Concomitant]
  5. ATORVASTATIN CALCIUM [Concomitant]
  6. TOLTERODINE TARTRATE [Concomitant]
  7. ASPIRIN [Concomitant]
  8. HYDROCODONE BITARTRATE [Concomitant]
  9. ALENDRONATE SODIUM [Concomitant]
  10. VERAPAMIL [Concomitant]

REACTIONS (1)
  - BREAST CANCER [None]
